FAERS Safety Report 25424757 (Version 8)
Quarter: 2025Q4

REPORT INFORMATION
  Report Type: Report from Study
  Country: US (occurrence: US)
  Receive Date: 20250611
  Receipt Date: 20251007
  Transmission Date: 20260118
  Serious: Yes (Hospitalization, Disabling, Other)
  Sender: ABBVIE
  Company Number: US-ABBVIE-6300624

PATIENT
  Age: 60 Year
  Sex: Female
  Weight: 139 kg

DRUGS (3)
  1. RINVOQ [Suspect]
     Active Substance: UPADACITINIB
     Indication: Rheumatoid arthritis
     Dosage: STRENGTH: 15 MG
     Route: 048
     Dates: start: 20240918, end: 20250302
  2. FOLIC ACID [Concomitant]
     Active Substance: FOLIC ACID
     Indication: Product used for unknown indication
  3. OMEPRAZOLE [Concomitant]
     Active Substance: OMEPRAZOLE
     Indication: Product used for unknown indication

REACTIONS (11)
  - Meningococcal bacteraemia [Recovered/Resolved with Sequelae]
  - Meningitis meningococcal [Recovered/Resolved]
  - Meningitis [Unknown]
  - Acute respiratory failure [Recovered/Resolved]
  - Oral herpes [Unknown]
  - Hypernatraemia [Recovered/Resolved]
  - Gastrooesophageal reflux disease [Unknown]
  - Metabolic encephalopathy [Unknown]
  - Mastoiditis [Unknown]
  - Meningococcal sepsis [Recovered/Resolved with Sequelae]
  - Chronic sinusitis [Unknown]

NARRATIVE: CASE EVENT DATE: 20250303
